FAERS Safety Report 23447059 (Version 1)
Quarter: 2024Q1

REPORT INFORMATION
  Report Type: Spontaneous
  Country: DE (occurrence: DE)
  Receive Date: 20240126
  Receipt Date: 20240126
  Transmission Date: 20240410
  Serious: Yes (Life-Threatening, Other)
  Sender: FDA-Public Use
  Company Number: DE-ANIPHARMA-2020-DE-000182

PATIENT
  Sex: Female
  Weight: 70 kg

DRUGS (3)
  1. ANASTROZOLE [Suspect]
     Active Substance: ANASTROZOLE
     Indication: Hormone receptor negative HER2 positive breast cancer
     Dosage: 1 MG DAILY
     Route: 048
     Dates: start: 20191216
  2. ZOMETA [Suspect]
     Active Substance: ZOLEDRONIC ACID
     Dosage: DOSE TEXT: 4 MG (D1Q28)
     Route: 065
     Dates: start: 20191216
  3. KISQALI [Suspect]
     Active Substance: RIBOCICLIB
     Dosage: 600 MG DAILY / 600 MG DAILY / 400 MG DAILY / 200 MG DAILY
     Route: 048
     Dates: start: 20200914

REACTIONS (2)
  - Neutropenia [Unknown]
  - Leukopenia [Unknown]

NARRATIVE: CASE EVENT DATE: 20200316
